FAERS Safety Report 8787192 (Version 1)
Quarter: 2012Q4

REPORT INFORMATION
  Report Type: 
  Country: US (occurrence: US)
  Receive Date: 20120914
  Receipt Date: 20120914
  Transmission Date: 20130627
  Serious: Yes (Other)
  Sender: FDA-Public Use
  Company Number: US-ELI_LILLY_AND_COMPANY-US201209001273

PATIENT
  Sex: Female

DRUGS (1)
  1. CYMBALTA [Suspect]
     Indication: FIBROMYALGIA
     Dosage: 60 mg, qd
     Dates: start: 201009

REACTIONS (10)
  - Skin exfoliation [Unknown]
  - Blister [Unknown]
  - Pain of skin [Unknown]
  - Paraesthesia [Unknown]
  - Feeling abnormal [Unknown]
  - Drug withdrawal syndrome [Unknown]
  - Pain [Unknown]
  - Fatigue [Unknown]
  - Immune system disorder [Unknown]
  - Night sweats [Unknown]
